FAERS Safety Report 8007034-9 (Version None)
Quarter: 2011Q4

REPORT INFORMATION
  Report Type: 
  Country: None (occurrence: None)
  Receive Date: 20111227
  Receipt Date: 20111214
  Transmission Date: 20120403
  Serious: Yes (Hospitalization)
  Sender: FDA-Public Use
  Company Number: US-UCBSA-040459

PATIENT
  Age: 63 Year
  Sex: Male
  Weight: 72.72 kg

DRUGS (7)
  1. CIMZIA [Suspect]
     Indication: CROHN'S DISEASE
     Route: 058
     Dates: start: 20100823, end: 20100907
  2. CIPROFLOXACIN [Concomitant]
     Indication: CROHN'S DISEASE
     Dates: start: 20100101, end: 20100101
  3. BUDESONIDE [Concomitant]
     Indication: CROHN'S DISEASE
     Dates: start: 20100601
  4. OCTREOTIDE ACETATE [Concomitant]
  5. MYCAMINE [Concomitant]
  6. TPN [Concomitant]
  7. VANCOMYCIN HYCHLORIDE [Concomitant]

REACTIONS (4)
  - ABDOMINAL ABSCESS [None]
  - FUNGAEMIA [None]
  - ANAEMIA [None]
  - DEVICE RELATED SEPSIS [None]
